FAERS Safety Report 6296713-X (Version None)
Quarter: 2009Q3

REPORT INFORMATION
  Report Type: 
  Country: None (occurrence: None)
  Receive Date: 20090804
  Receipt Date: 20090724
  Transmission Date: 20100115
  Serious: Yes (Other)
  Sender: FDA-Public Use
  Company Number: US-AVENTIS-200916590US

PATIENT
  Sex: Female

DRUGS (4)
  1. LANTUS [Suspect]
     Indication: TYPE 2 DIABETES MELLITUS
     Route: 058
  2. LANTUS [Suspect]
     Route: 058
  3. HUMALOG [Concomitant]
     Dosage: DOSE: SLIDING SCALE
  4. ANALGESICS [Concomitant]
     Dosage: DOSE: UNK

REACTIONS (4)
  - COLITIS ISCHAEMIC [None]
  - GOITRE [None]
  - RENAL CANCER [None]
  - WEIGHT DECREASED [None]
